FAERS Safety Report 18475683 (Version 2)
Quarter: 2020Q4

REPORT INFORMATION
  Report Type: Report from Study
  Country: None (occurrence: US)
  Receive Date: 20201106
  Receipt Date: 20201218
  Transmission Date: 20210114
  Serious: Yes (Death, Life-Threatening, Hospitalization)
  Sender: FDA-Public Use
  Company Number: US-ABBVIE-20P-163-3638430-00

PATIENT
  Age: 9 Year
  Sex: Male
  Weight: 40.1 kg

DRUGS (14)
  1. MIRTAZAPINE. [Concomitant]
     Active Substance: MIRTAZAPINE
     Indication: DEPRESSION
  2. ABT-263 [Suspect]
     Active Substance: NAVITOCLAX
     Indication: LYMPHOMA
     Route: 048
     Dates: start: 20201007, end: 20201022
  3. URSODIOL. [Concomitant]
     Active Substance: URSODIOL
     Indication: PROPHYLAXIS
     Route: 048
  4. MAGNESIUM AMINO ACIDS CHELATE [Concomitant]
     Indication: HYPOMAGNESAEMIA
     Route: 048
  5. FILGRASTIM [Concomitant]
     Active Substance: FILGRASTIM
     Indication: NEUTROPENIA
     Dosage: ONCE DAILY PRN ANC{1500
     Route: 058
     Dates: start: 20201029
  6. CHOLECALCIFEROL [Concomitant]
     Active Substance: CHOLECALCIFEROL
     Indication: VITAMIN D DEFICIENCY
     Route: 048
  7. OMEPRAZOLE. [Concomitant]
     Active Substance: OMEPRAZOLE
     Indication: GASTROOESOPHAGEAL REFLUX DISEASE
     Route: 048
     Dates: start: 20201029
  8. ABT-263 [Suspect]
     Active Substance: NAVITOCLAX
     Route: 048
     Dates: start: 20201031, end: 20201116
  9. CYCLOSPORINE EYE DROPS [Concomitant]
     Indication: PROPHYLAXIS
     Dosage: 1 DROP EACH EYE BID
     Route: 047
  10. MIRTAZAPINE. [Concomitant]
     Active Substance: MIRTAZAPINE
     Indication: SLEEP DISORDER
     Dosage: AT BEDTIME
     Route: 048
  11. ONDANSETRON [Concomitant]
     Active Substance: ONDANSETRON
     Indication: NAUSEA
     Dosage: Q4H PRN
     Route: 058
     Dates: start: 20201029
  12. ONDANSETRON [Concomitant]
     Active Substance: ONDANSETRON
     Indication: VOMITING
  13. VENETOCLAX. [Suspect]
     Active Substance: VENETOCLAX
     Indication: LYMPHOMA
     Route: 048
     Dates: start: 20201008, end: 20201022
  14. OLANZAPINE. [Concomitant]
     Active Substance: OLANZAPINE
     Indication: SLEEP DISORDER
     Dosage: AT BEDTIME
     Route: 048

REACTIONS (8)
  - Traumatic haematoma [Recovered/Resolved]
  - Fall [Recovered/Resolved]
  - Febrile neutropenia [Recovered/Resolved]
  - Sepsis [Recovered/Resolved]
  - Pancytopenia [Unknown]
  - Thrombocytopenia [Unknown]
  - Respiratory failure [Fatal]
  - Hypertriglyceridaemia [Unknown]

NARRATIVE: CASE EVENT DATE: 20201022
